FAERS Safety Report 8575790-7 (Version None)
Quarter: 2012Q3

REPORT INFORMATION
  Report Type: 
  Country: None (occurrence: None)
  Receive Date: 20120807
  Receipt Date: 20120709
  Transmission Date: 20120928
  Serious: Yes (Hospitalization)
  Sender: FDA-Public Use
  Company Number: JP-009507513-1207JPN000645

PATIENT

DRUGS (3)
  1. PEG-INTRON [Suspect]
     Dosage: 1.5MCG/KG/WEEK
     Route: 058
     Dates: start: 20120515, end: 20120624
  2. TELAPREVIR [Suspect]
     Dosage: 2250 MG, QD
     Route: 048
     Dates: start: 20120515, end: 20120624
  3. REBETOL [Suspect]
     Dosage: 1000 MG, QD
     Route: 048
     Dates: start: 20120515, end: 20120624

REACTIONS (1)
  - ERYTHEMA MULTIFORME [None]
